FAERS Safety Report 23950409 (Version 1)
Quarter: 2024Q2

REPORT INFORMATION
  Report Type: Spontaneous
  Country: NL (occurrence: NL)
  Receive Date: 20240607
  Receipt Date: 20240607
  Transmission Date: 20240716
  Serious: Yes (Life-Threatening, Hospitalization, Other)
  Sender: FDA-Public Use
  Company Number: NL-PIRAMAL PHARMA LIMITED-2024-PPL-000430

PATIENT

DRUGS (12)
  1. FENTANYL [Interacting]
     Active Substance: FENTANYL\FENTANYL CITRATE
     Indication: Product used for unknown indication
     Dosage: MULTIPLE DOSES OF FENTANYL
  2. PIRITRAMIDE [Interacting]
     Active Substance: PIRITRAMIDE
     Indication: Product used for unknown indication
     Dosage: 3 MILLIGRAM
     Route: 042
  3. PIRITRAMIDE [Interacting]
     Active Substance: PIRITRAMIDE
     Dosage: 7 MILLIGRAM
     Route: 058
  4. BACLOFEN [Interacting]
     Active Substance: BACLOFEN
     Indication: Muscle spasticity
     Dosage: 672 MICROGRAM/D
     Route: 037
  5. BACLOFEN [Interacting]
     Active Substance: BACLOFEN
     Dosage: 550 MICROGRAM/DAY
     Route: 037
  6. TRAMADOL [Suspect]
     Active Substance: TRAMADOL\TRAMADOL HYDROCHLORIDE
     Indication: Product used for unknown indication
     Dosage: 100 MILLIGRAM
  7. ACETAMINOPHEN [Concomitant]
     Active Substance: ACETAMINOPHEN
     Indication: Product used for unknown indication
     Dosage: UNK
  8. DICLOFENAC [Concomitant]
     Active Substance: DICLOFENAC
     Indication: Product used for unknown indication
     Dosage: UNK
  9. OMEPRAZOLE [Concomitant]
     Active Substance: DONEPEZIL HYDROCHLORIDE\OMEPRAZOLE\OMEPRAZOLE MAGNESIUM
     Indication: Product used for unknown indication
     Dosage: 40 MILLIGRAM, 2DD
  10. CALCIUM CARBONATE\VITAMIN D [Concomitant]
     Active Substance: CALCIUM CARBONATE\VITAMIN D
     Indication: Product used for unknown indication
     Dosage: 500 MG, 2 DD
  11. BISACODYL [Concomitant]
     Active Substance: BISACODYL
     Indication: Product used for unknown indication
     Dosage: 10MG, 3/WK
  12. POLYETHYLENE GLYCOLS [Concomitant]
     Active Substance: POLYETHYLENE GLYCOLS
     Indication: Product used for unknown indication
     Dosage: UNK

REACTIONS (5)
  - Tachypnoea [Recovered/Resolved]
  - Altered state of consciousness [Recovered/Resolved]
  - Drug interaction [Unknown]
  - Apnoea [Recovered/Resolved]
  - Overdose [Unknown]

NARRATIVE: CASE EVENT DATE: 20120101
